FAERS Safety Report 9645270 (Version 2)
Quarter: 2013Q4

REPORT INFORMATION
  Report Type: Spontaneous
  Country: US (occurrence: US)
  Receive Date: 20131025
  Receipt Date: 20131031
  Transmission Date: 20140711
  Serious: Yes (Death)
  Sender: FDA-Public Use
  Company Number: US-JNJFOC-20131014657

PATIENT
  Age: 81 Year
  Sex: Female
  Weight: 52.16 kg

DRUGS (10)
  1. XARELTO [Suspect]
     Indication: EMBOLIC STROKE
     Route: 048
     Dates: start: 20130905
  2. XARELTO [Suspect]
     Indication: ARRHYTHMIA
     Route: 048
     Dates: start: 20130905
  3. XARELTO [Suspect]
     Indication: CEREBROVASCULAR ACCIDENT
     Route: 048
     Dates: start: 20130905
  4. CEFTIN [Concomitant]
     Route: 065
  5. METOPROLOL [Concomitant]
     Route: 065
  6. FLUTICASONE [Concomitant]
     Route: 045
  7. EXFORGE [Concomitant]
     Dosage: 5 MG TO 160 MG
     Route: 065
  8. ATORVASTATIN [Concomitant]
     Route: 065
  9. ADVAIR [Concomitant]
     Dosage: 100-50
     Route: 065
  10. SYNTHROID [Concomitant]
     Route: 065

REACTIONS (1)
  - Cerebral haemorrhage [Fatal]
